FAERS Safety Report 11145788 (Version 1)
Quarter: 2015Q2

REPORT INFORMATION
  Report Type: Spontaneous
  Country: CN (occurrence: CN)
  Receive Date: 20150528
  Receipt Date: 20150528
  Transmission Date: 20150821
  Serious: Yes (Death)
  Sender: FDA-Public Use
  Company Number: CN-BAYER-2015-248132

PATIENT
  Age: 62 Year
  Sex: Male

DRUGS (9)
  1. AVELOX [Suspect]
     Active Substance: MOXIFLOXACIN HYDROCHLORIDE
     Indication: INFECTION PROPHYLAXIS
     Dosage: 0.4 G, QD
     Route: 041
     Dates: start: 20140326, end: 20140415
  2. TAZOBACTAM SODIUM [Concomitant]
     Active Substance: TAZOBACTAM SODIUM
     Dosage: 2 G, BID
     Route: 041
     Dates: start: 20140326
  3. OMEPRAZOLE. [Concomitant]
     Active Substance: OMEPRAZOLE
  4. SOMATOSTATIN [Concomitant]
     Active Substance: SOMATOSTATIN
  5. ASPIRINE [Concomitant]
     Active Substance: ASPIRIN
  6. ULINASTATIN [Concomitant]
     Active Substance: ULINASTATIN
  7. ACARBOSE. [Concomitant]
     Active Substance: ACARBOSE
  8. CEFOPERAZONE SODIUM [Concomitant]
     Active Substance: CEFOPERAZONE SODIUM
     Dosage: UNK
     Route: 041
     Dates: start: 20140326
  9. FELODIPINE. [Concomitant]
     Active Substance: FELODIPINE

REACTIONS (5)
  - Toxic epidermal necrolysis [Fatal]
  - Respiratory acidosis [Fatal]
  - Multi-organ failure [Fatal]
  - Sepsis [Fatal]
  - Metabolic acidosis [Fatal]

NARRATIVE: CASE EVENT DATE: 201404
